FAERS Safety Report 8226081-5 (Version None)
Quarter: 2012Q1

REPORT INFORMATION
  Report Type: 
  Country: None (occurrence: None)
  Receive Date: 20120319
  Receipt Date: 20120307
  Transmission Date: 20120608
  Serious: Yes (Other)
  Sender: FDA-Public Use
  Company Number: 2012MA003109

PATIENT
  Age: 72 Year
  Sex: Female

DRUGS (3)
  1. PROPRANOLOL [Concomitant]
  2. LEXILIUM [Concomitant]
  3. NIFEDIPINE [Suspect]
     Indication: HYPERTENSION
     Dosage: 40 MG;PRN;PO
     Route: 048

REACTIONS (7)
  - PAIN [None]
  - ERYTHEMA [None]
  - OVERDOSE [None]
  - PRODUCT QUALITY ISSUE [None]
  - TACHYCARDIA [None]
  - FEELING HOT [None]
  - ARRHYTHMIA [None]
